FAERS Safety Report 20196720 (Version 1)
Quarter: 2021Q4

REPORT INFORMATION
  Report Type: Report from Study
  Country: CA (occurrence: CA)
  Receive Date: 20211216
  Receipt Date: 20211216
  Transmission Date: 20220303
  Serious: Yes (Death)
  Sender: FDA-Public Use
  Company Number: CA-ABBVIE-21K-028-4202161-00

PATIENT
  Sex: Male

DRUGS (4)
  1. VENCLEXTA [Suspect]
     Active Substance: VENETOCLAX
     Indication: Acute myeloid leukaemia
     Dosage: 20MG DAILY/7 DAYS THEN 50MG DAILY/7 DAYS THEN 100MG DAILY/7 DAYS THEN 200MG DAILY/7 DAYS
     Route: 048
     Dates: start: 20210923, end: 20210930
  2. VENCLEXTA [Suspect]
     Active Substance: VENETOCLAX
     Dosage: 20MG DAILY/7 DAYS THEN 50MG DAILY/7 DAYS THEN 100MG DAILY/7 DAYS THEN 200MG DAILY/7 DAYS
     Route: 048
     Dates: start: 20211001, end: 20211008
  3. VENCLEXTA [Suspect]
     Active Substance: VENETOCLAX
     Dosage: 20MG DAILY/7 DAYS THEN 50MG DAILY/7 DAYS THEN 100MG DAILY/7 DAYS THEN 200MG DAILY/7 DAYS
     Route: 048
     Dates: start: 20211009, end: 20211016
  4. VENCLEXTA [Suspect]
     Active Substance: VENETOCLAX
     Dosage: 20MG DAILY/7 DAYS THEN 50MG DAILY/7 DAYS THEN 100MG DAILY/7 DAYS THEN 200MG DAILY/7 DAYS
     Route: 048
     Dates: start: 20211017, end: 20211024

REACTIONS (1)
  - Death [Fatal]

NARRATIVE: CASE EVENT DATE: 20210101
